FAERS Safety Report 21730099 (Version 3)
Quarter: 2023Q1

REPORT INFORMATION
  Report Type: Report from Study
  Country: US (occurrence: US)
  Receive Date: 20221214
  Receipt Date: 20230321
  Transmission Date: 20230418
  Serious: Yes (Other)
  Sender: FDA-Public Use
  Company Number: US-ABBVIE-4235728

PATIENT
  Age: 40 Year
  Sex: Female
  Weight: 117.9 kg

DRUGS (3)
  1. HUMIRA [Suspect]
     Active Substance: ADALIMUMAB
     Indication: Hidradenitis
     Route: 058
     Dates: start: 20210906
  2. HUMIRA [Suspect]
     Active Substance: ADALIMUMAB
     Indication: Rheumatoid arthritis
     Dates: start: 20221228
  3. HUMIRA [Suspect]
     Active Substance: ADALIMUMAB
     Dates: start: 20221130

REACTIONS (4)
  - Cyst [Unknown]
  - Sinusitis [Recovered/Resolved]
  - Turbinectomy [Unknown]
  - Nasal septum deviation [Unknown]

NARRATIVE: CASE EVENT DATE: 20221201
